FAERS Safety Report 9596317 (Version 2)
Quarter: 2013Q4

REPORT INFORMATION
  Report Type: Spontaneous
  Country: FR (occurrence: FR)
  Receive Date: 20131004
  Receipt Date: 20131004
  Transmission Date: 20140711
  Serious: Yes (Hospitalization)
  Sender: FDA-Public Use
  Company Number: FR-JNJFOC-20130916185

PATIENT
  Age: 58 Year
  Sex: Female

DRUGS (3)
  1. DUROGESIC [Suspect]
     Indication: PAIN
     Route: 062
     Dates: start: 20130417, end: 20130420
  2. OXYCONTIN [Suspect]
     Indication: PAIN
     Route: 065
     Dates: end: 20130420
  3. OXYNORM [Suspect]
     Indication: PAIN
     Route: 048
     Dates: end: 20130420

REACTIONS (7)
  - Overdose [Unknown]
  - Depressed level of consciousness [Recovered/Resolved]
  - Apnoea [Unknown]
  - Cyanosis [Unknown]
  - Atelectasis [Unknown]
  - Loss of consciousness [Recovered/Resolved]
  - Vomiting [Unknown]
